FAERS Safety Report 5358157-4 (Version None)
Quarter: 2007Q2

REPORT INFORMATION
  Report Type: 
  Country: None (occurrence: None)
  Receive Date: 20070530
  Receipt Date: 20061017
  Transmission Date: 20071010
  Serious: Yes (Hospitalization)
  Sender: FDA-Public Use
  Company Number: US200605005507

PATIENT
  Age: 25 Year
  Sex: Male
  Weight: 99.3 kg

DRUGS (6)
  1. ZYPREXA [Suspect]
     Dosage: SEE IMAGE
     Dates: start: 19960101, end: 19980101
  2. ZYPREXA [Suspect]
     Dosage: SEE IMAGE
     Dates: end: 20050101
  3. ZYPREXA [Suspect]
     Dosage: SEE IMAGE
     Dates: start: 19980101
  4. ABILIFY [Concomitant]
  5. RISPERIDONE [Concomitant]
  6. ZOLOFT [Concomitant]

REACTIONS (2)
  - DIABETES MELLITUS [None]
  - WEIGHT INCREASED [None]
